FAERS Safety Report 23100854 (Version 1)
Quarter: 2023Q4

REPORT INFORMATION
  Report Type: Spontaneous
  Country: US (occurrence: None)
  Receive Date: 20231021
  Receipt Date: 20231021
  Transmission Date: 20240109
  Serious: Yes (Hospitalization)
  Sender: FDA-Public Use
  Company Number: None

PATIENT
  Age: 54 Year
  Sex: Male

DRUGS (1)
  1. EMPAGLIFLOZIN [Suspect]
     Active Substance: EMPAGLIFLOZIN
     Dates: start: 20221110

REACTIONS (4)
  - Euglycaemic diabetic ketoacidosis [None]
  - Pancreatitis acute [None]
  - Influenza [None]
  - Pain [None]

NARRATIVE: CASE EVENT DATE: 20221231
